FAERS Safety Report 6135714-9 (Version None)
Quarter: 2009Q1

REPORT INFORMATION
  Report Type: 
  Country: None (occurrence: None)
  Receive Date: 20090327
  Receipt Date: 20090316
  Transmission Date: 20090719
  Serious: Yes (Other)
  Sender: FDA-Public Use
  Company Number: US-PFIZER INC-2007099582

PATIENT
  Sex: Male
  Weight: 98 kg

DRUGS (3)
  1. CHANTIX [Suspect]
     Indication: SMOKING CESSATION THERAPY
     Dosage: 0.5 MG, 1X/DAY
     Dates: start: 20071120, end: 20080123
  2. VITAMINS [Concomitant]
  3. PROMETHAZINE [Concomitant]
     Dosage: 25 MG, AS NEEDED
     Dates: start: 20071214

REACTIONS (8)
  - DEPRESSION [None]
  - DYSPHAGIA [None]
  - GASTROOESOPHAGEAL REFLUX DISEASE [None]
  - IRRITABILITY [None]
  - MALAISE [None]
  - MOOD ALTERED [None]
  - NAUSEA [None]
  - PHARYNGEAL OEDEMA [None]
